FAERS Safety Report 6964092-8 (Version None)
Quarter: 2010Q3

REPORT INFORMATION
  Report Type: 
  Country: None (occurrence: None)
  Receive Date: 20100831
  Receipt Date: 20100826
  Transmission Date: 20110219
  Serious: Yes (Life-Threatening, Hospitalization, Other)
  Sender: FDA-Public Use
  Company Number: 2007SP016780

PATIENT
  Age: 74 Year
  Weight: 69 kg

DRUGS (24)
  1. TEMODAL [Suspect]
     Indication: CENTRAL NERVOUS SYSTEM LYMPHOMA
     Dosage: 270 MG;QD;PO
     Route: 048
     Dates: start: 20070718, end: 20070719
  2. TEMODAL [Suspect]
     Indication: CENTRAL NERVOUS SYSTEM LYMPHOMA
     Dosage: 270 MG;QD;PO
     Route: 048
     Dates: start: 20070821
  3. METHOTREXATE [Suspect]
     Indication: CENTRAL NERVOUS SYSTEM LYMPHOMA
     Dosage: 6.3 GM; IV
     Route: 042
     Dates: start: 20070718, end: 20070718
  4. METHOTREXATE [Suspect]
     Indication: CENTRAL NERVOUS SYSTEM LYMPHOMA
     Dosage: 6.3 GM; IV
     Route: 042
     Dates: start: 20070806
  5. TAHOR [Concomitant]
  6. SECTRAL [Concomitant]
  7. CALCIUM FOLINATE [Concomitant]
  8. LASIX [Concomitant]
  9. LOVENOX [Concomitant]
  10. SOLU-MEDROL [Concomitant]
  11. POTASSIUM GLUCONATE TAB [Concomitant]
  12. CITALOPRAM HYDROBROMIDE [Concomitant]
  13. ASPEGIC 1000 [Concomitant]
  14. HYDROCORTISONE [Concomitant]
  15. PIPERACILLIN AND TAZOBACTAM [Concomitant]
  16. RISORDAN [Concomitant]
  17. OGASTRO [Concomitant]
  18. BICARBONATE SODIUM [Concomitant]
  19. BICARBONATE SODIUM [Concomitant]
  20. MAGNESIUM SULFATE [Concomitant]
  21. AUGMENTIN '125' [Concomitant]
  22. DIFFU K [Concomitant]
  23. RISPERDAL [Concomitant]
  24. INIPOMP [Concomitant]

REACTIONS (15)
  - ANAEMIA [None]
  - ASPARTATE AMINOTRANSFERASE INCREASED [None]
  - DEPRESSED LEVEL OF CONSCIOUSNESS [None]
  - HAEMATOTOXICITY [None]
  - HYPOTENSION [None]
  - KLEBSIELLA SEPSIS [None]
  - LYMPHOPENIA [None]
  - MYOCARDIAL INFARCTION [None]
  - NEUTROPENIA [None]
  - PNEUMONIA ASPIRATION [None]
  - PULMONARY EMBOLISM [None]
  - PULMONARY OEDEMA [None]
  - RESPIRATORY FAILURE [None]
  - SEPTIC SHOCK [None]
  - THROMBOCYTOPENIA [None]
